FAERS Safety Report 8072972-8 (Version None)
Quarter: 2012Q1

REPORT INFORMATION
  Report Type: 
  Country: None (occurrence: None)
  Receive Date: 20120126
  Receipt Date: 20120120
  Transmission Date: 20120608
  Serious: No
  Sender: FDA-Public Use
  Company Number: US-B.I. PHARMACEUTICALS,INC./RIDGEFIELD-2012-BP-01374BP

PATIENT
  Sex: Female

DRUGS (4)
  1. PRADAXA [Suspect]
     Indication: ARRHYTHMIA
     Dosage: 300 MG
     Route: 048
     Dates: start: 20110101
  2. AMIODARONE HCL [Concomitant]
     Indication: ARRHYTHMIA
     Dates: start: 20110101
  3. TOPROL-XL [Concomitant]
     Indication: CARDIAC DISORDER
     Dosage: 25 MG
     Route: 048
     Dates: start: 20050101
  4. VENLAFAXINE [Concomitant]
     Indication: PROPHYLAXIS
     Dates: start: 20110101

REACTIONS (3)
  - RED BLOOD CELL COUNT DECREASED [None]
  - ANAEMIA [None]
  - ASTHENIA [None]
